FAERS Safety Report 13074228 (Version 1)
Quarter: 2016Q4

REPORT INFORMATION
  Report Type: Other
  Country: MY (occurrence: MY)
  Receive Date: 20161230
  Receipt Date: 20161230
  Transmission Date: 20170207
  Serious: Yes (Other)
  Sender: FDA-Public Use
  Company Number: MY-JUBILANT GENERICS LIMITED-1061405

PATIENT
  Sex: Male

DRUGS (1)
  1. OLANZAPINE. [Suspect]
     Active Substance: OLANZAPINE

REACTIONS (1)
  - Colonic pseudo-obstruction [Recovered/Resolved]

NARRATIVE: CASE EVENT DATE: 20161213
